FAERS Safety Report 5897220-6 (Version None)
Quarter: 2008Q3

REPORT INFORMATION
  Report Type: 
  Country: None (occurrence: None)
  Receive Date: 20080923
  Receipt Date: 20080909
  Transmission Date: 20090109
  Serious: No
  Sender: FDA-Public Use
  Company Number: B0537701A

PATIENT
  Age: 43 Year
  Sex: Male

DRUGS (7)
  1. LAMIVUDINE [Suspect]
     Indication: HIV INFECTION
     Dates: start: 19980101
  2. ZIDOVUDINE [Suspect]
     Indication: HIV INFECTION
     Dates: start: 19980101
  3. STAVUDINE [Suspect]
     Indication: HIV INFECTION
  4. DIDANOSINE [Suspect]
     Indication: HIV INFECTION
  5. NELFINAVIR MESYLATE [Concomitant]
  6. ABACAVIR SULFATE [Concomitant]
  7. T-20 [Concomitant]

REACTIONS (7)
  - ASCITES [None]
  - DRUG TOXICITY [None]
  - HEPATIC STEATOSIS [None]
  - LIVER TRANSPLANT [None]
  - NODULAR REGENERATIVE HYPERPLASIA [None]
  - OESOPHAGEAL VARICES HAEMORRHAGE [None]
  - PORTAL HYPERTENSION [None]
